FAERS Safety Report 18610818 (Version 1)
Quarter: 2020Q4

REPORT INFORMATION
  Report Type: Spontaneous
  Country: US (occurrence: US)
  Receive Date: 20201212
  Receipt Date: 20201212
  Transmission Date: 20210114
  Serious: Yes (Other)
  Sender: FDA-Public Use
  Company Number: None

PATIENT
  Age: 62 Year
  Sex: Female
  Weight: 54 kg

DRUGS (3)
  1. CALCIUM [Concomitant]
     Active Substance: CALCIUM
  2. VITAMIN D [Concomitant]
     Active Substance: VITAMIN D NOS
  3. ALENDRONATE [Suspect]
     Active Substance: ALENDRONATE SODIUM
     Indication: OSTEOPOROSIS
     Route: 048
     Dates: start: 20201018, end: 20201018

REACTIONS (10)
  - Headache [None]
  - Influenza like illness [None]
  - Abdominal distension [None]
  - Bone pain [None]
  - Pain [None]
  - Arthralgia [None]
  - Nausea [None]
  - Dyspepsia [None]
  - Flatulence [None]
  - Decreased appetite [None]

NARRATIVE: CASE EVENT DATE: 20201018
